FAERS Safety Report 9482259 (Version 3)
Quarter: 2013Q4

REPORT INFORMATION
  Report Type: Spontaneous
  Country: JP (occurrence: JP)
  Receive Date: 20130828
  Receipt Date: 20131204
  Transmission Date: 20140711
  Serious: Yes (Other)
  Sender: FDA-Public Use
  Company Number: JP-ASTELLAS-2013JP008715

PATIENT
  Sex: Male

DRUGS (12)
  1. BETANIS [Suspect]
     Indication: HYPERTONIC BLADDER
     Dosage: 25 MG, UID/QD
     Route: 048
     Dates: start: 20121120, end: 20130120
  2. BETANIS [Suspect]
     Dosage: 50 MG, UID/QD
     Route: 048
     Dates: start: 20130121
  3. VESICARE [Suspect]
     Indication: HYPERTONIC BLADDER
     Dosage: 5 MG, UID/QD
     Route: 048
     Dates: start: 20090804, end: 20110131
  4. VESICARE [Suspect]
     Dosage: 10 MG, UNKNOWN/D
     Route: 048
     Dates: start: 20110201, end: 20131111
  5. VESICARE [Suspect]
     Dosage: 5 MG, UID/QD
     Route: 048
     Dates: start: 20131112
  6. NU-LOTAN [Concomitant]
     Dosage: 50 MG, UNKNOWN/D
     Route: 048
  7. LIPOVAS                            /00848101/ [Concomitant]
     Dosage: 5 MG, UNKNOWN/D
     Route: 048
  8. OPALMON [Concomitant]
     Dosage: 5 UG, UID/QD
     Route: 048
  9. ARICEPT [Concomitant]
     Dosage: 5 MG, UNKNOWN/D
     Route: 048
  10. BUP-4 [Concomitant]
     Indication: HYPERTONIC BLADDER
     Dosage: 10 MG, UNKNOWN/D
     Route: 048
     Dates: start: 20110426, end: 20121119
  11. CASODEX [Concomitant]
     Dosage: 80 MG, UID/QD
     Route: 048
     Dates: start: 20060214, end: 20121221
  12. AMLODIPINE                         /00972402/ [Concomitant]
     Dosage: 5 MG, UNKNOWN/D
     Route: 048

REACTIONS (2)
  - Glomerular filtration rate decreased [Unknown]
  - Blood urea increased [Unknown]
